FAERS Safety Report 18916438 (Version 1)
Quarter: 2021Q1

REPORT INFORMATION
  Report Type: Spontaneous
  Country: US (occurrence: US)
  Receive Date: 20210219
  Receipt Date: 20210219
  Transmission Date: 20210420
  Serious: Yes (Hospitalization, Other)
  Sender: FDA-Public Use
  Company Number: US-009507513-2102USA007271

PATIENT
  Age: 35 Year
  Sex: Female

DRUGS (3)
  1. ISONIAZID. [Suspect]
     Active Substance: ISONIAZID
     Indication: ANTIBIOTIC PROPHYLAXIS
     Dosage: 300 MILLIGRAM, QD
  2. PYRIDOXINE [Suspect]
     Active Substance: PYRIDOXINE
     Indication: ANTIBIOTIC PROPHYLAXIS
     Dosage: 25 MILLIGRAM
  3. REMERON [Suspect]
     Active Substance: MIRTAZAPINE
     Indication: DEPRESSION
     Dosage: 15 MILLIGRAM, HS
     Route: 048

REACTIONS (3)
  - Serotonin syndrome [Unknown]
  - Tremor [Recovered/Resolved]
  - Nausea [Recovered/Resolved]
